FAERS Safety Report 7649710-3 (Version None)
Quarter: 2011Q3

REPORT INFORMATION
  Report Type: 
  Country: None (occurrence: None)
  Receive Date: 20110727
  Receipt Date: 20110715
  Transmission Date: 20111222
  Serious: Yes (Death)
  Sender: FDA-Public Use
  Company Number: UTC-008191

PATIENT
  Age: 67 Year
  Sex: Male
  Weight: 102.3 kg

DRUGS (5)
  1. TRACLEER [Concomitant]
  2. COUMADIN [Concomitant]
  3. TYVASO [Suspect]
     Indication: PULMONARY ARTERIAL HYPERTENSION
     Dosage: 120 MCG (30 MCG,4 IN 1 D),INHALATION
     Route: 055
     Dates: start: 20110503, end: 20110531
  4. DIURETICS (DIURETICS) [Concomitant]
  5. ASPIRIN [Concomitant]

REACTIONS (2)
  - SYNCOPE [None]
  - PULMONARY ARTERIAL HYPERTENSION [None]
